FAERS Safety Report 7555630-5 (Version None)
Quarter: 2011Q2

REPORT INFORMATION
  Report Type: 
  Country: None (occurrence: None)
  Receive Date: 20110617
  Receipt Date: 20080929
  Transmission Date: 20111010
  Serious: Yes (Hospitalization)
  Sender: FDA-Public Use
  Company Number: PHHY2008US16499

PATIENT
  Sex: Female
  Weight: 67.2 kg

DRUGS (5)
  1. PROTONIX [Concomitant]
     Indication: GASTROOESOPHAGEAL REFLUX DISEASE
     Dosage: 40 MG, TID
     Route: 048
  2. EXFORGE [Concomitant]
     Indication: HYPERTENSION
     Dosage: 10/20, HALF TABLET DAILY
     Route: 048
  3. OXYCODONE HCL [Concomitant]
  4. EXJADE [Suspect]
     Indication: IRON OVERLOAD
     Dosage: 500 MG, BID
     Route: 048
     Dates: start: 20080401, end: 20080604
  5. EXJADE [Suspect]
     Indication: REFRACTORY ANAEMIA
     Dosage: 1500 MG DAILY
     Route: 048
     Dates: start: 20080605, end: 20080628

REACTIONS (9)
  - ATRIAL FIBRILLATION [None]
  - DYSPNOEA [None]
  - PALPITATIONS [None]
  - MITRAL VALVE INCOMPETENCE [None]
  - MENTAL STATUS CHANGES [None]
  - FATIGUE [None]
  - COUGH [None]
  - CARDIAC FAILURE CONGESTIVE [None]
  - EJECTION FRACTION DECREASED [None]
